FAERS Safety Report 8262255-5 (Version None)
Quarter: 2012Q1

REPORT INFORMATION
  Report Type: 
  Country: None (occurrence: None)
  Receive Date: 20120327
  Receipt Date: 20090416
  Transmission Date: 20120608
  Serious: Yes (Other)
  Sender: FDA-Public Use
  Company Number: PHEH2009US03841

PATIENT
  Sex: Male

DRUGS (7)
  1. GLEEVEC [Suspect]
  2. SPRYCEL [Suspect]
  3. ALLERGY MEDICATION [Concomitant]
  4. AVALIDE [Concomitant]
  5. PROTONIX [Concomitant]
  6. METOPROLOL TARTRATE [Concomitant]
  7. ALOPURINOL (ALLOPURINOL) [Concomitant]

REACTIONS (1)
  - HAEMOGLOBIN DECREASED [None]
